FAERS Safety Report 7874571-7 (Version None)
Quarter: 2011Q4

REPORT INFORMATION
  Report Type: 
  Country: None (occurrence: None)
  Receive Date: 20111014
  Receipt Date: 20101108
  Transmission Date: 20120403
  Serious: Yes (Other)
  Sender: FDA-Public Use
  Company Number: 1000017219

PATIENT
  Age: 43 Year
  Sex: Male
  Weight: 96.6 kg

DRUGS (5)
  1. ZOLOFT [Suspect]
     Indication: DEPRESSION
     Dosage: ORAL
     Route: 048
     Dates: start: 19920101, end: 20100301
  2. CYMBALTA [Suspect]
     Indication: DEPRESSION
     Dosage: 60 MG (60 MG, 1 IN 1 D), ORAL
     Route: 048
     Dates: start: 20100101, end: 20100101
  3. METHADONE (METHADONE) (METHADONE) [Concomitant]
  4. WELLBUTRIN [Suspect]
     Indication: DEPRESSION
     Dosage: ORAL
     Route: 048
     Dates: start: 20100101, end: 20100101
  5. LEXAPRO [Suspect]
     Indication: DEPRESSION
     Dosage: 30 MG (30 MG, 1 IN 1 D), ORAL
     Route: 048
     Dates: start: 20100101

REACTIONS (5)
  - FATIGUE [None]
  - SUICIDAL IDEATION [None]
  - SOMNOLENCE [None]
  - OVERDOSE [None]
  - DRUG INEFFECTIVE [None]
